FAERS Safety Report 13194233 (Version 2)
Quarter: 2017Q1

REPORT INFORMATION
  Report Type: Spontaneous
  Country: FR (occurrence: FR)
  Receive Date: 20170207
  Receipt Date: 20170301
  Transmission Date: 20170428
  Serious: Yes (Hospitalization, Other)
  Sender: FDA-Public Use
  Company Number: FR-PFIZER INC-2017051967

PATIENT
  Age: 57 Year
  Sex: Female

DRUGS (6)
  1. ROACTEMRA [Suspect]
     Active Substance: TOCILIZUMAB
     Indication: RHEUMATOID ARTHRITIS
     Dosage: 560 MG, MONTHLY (8 MG/KG, 560 MG ONCE EVERY 4 WEEKS)
     Route: 058
     Dates: start: 20150608, end: 20161219
  2. IMETH [Suspect]
     Active Substance: METHOTREXATE SODIUM
     Indication: RHEUMATOID ARTHRITIS
     Dosage: 10 MG, WEEKLY
     Route: 048
     Dates: start: 20150608, end: 20161220
  3. APRANAX [Suspect]
     Active Substance: NAPROXEN
     Indication: EPICONDYLITIS
     Dosage: 550 MG, 2X/DAY
     Route: 048
     Dates: start: 20161219, end: 20161223
  4. APRANAX [Suspect]
     Active Substance: NAPROXEN
     Indication: ARTHRALGIA
  5. CRESTOR [Concomitant]
     Active Substance: ROSUVASTATIN CALCIUM
     Indication: HYPERCHOLESTEROLAEMIA
     Dosage: UNK
     Route: 048
     Dates: end: 201612
  6. LEVOTHYROX [Concomitant]
     Active Substance: LEVOTHYROXINE
     Indication: HYPOTHYROIDISM
     Dosage: 175 UG, DAILY
     Route: 048

REACTIONS (2)
  - Cellulitis streptococcal [Recovered/Resolved]
  - Streptococcal abscess [Recovered/Resolved]

NARRATIVE: CASE EVENT DATE: 20161219
